FAERS Safety Report 21937922 (Version 1)
Quarter: 2023Q1

REPORT INFORMATION
  Report Type: Spontaneous
  Country: US (occurrence: None)
  Receive Date: 20230201
  Receipt Date: 20230201
  Transmission Date: 20230417
  Serious: Yes (Hospitalization)
  Sender: FDA-Public Use
  Company Number: None

PATIENT
  Sex: Male

DRUGS (2)
  1. MELPHALAN [Suspect]
     Active Substance: MELPHALAN
     Indication: Plasma cell myeloma
     Dosage: FREQUENCY : DAILY;?
     Route: 048
     Dates: start: 20221222
  2. VELCADE [Suspect]
     Active Substance: BORTEZOMIB

REACTIONS (4)
  - Blood creatinine increased [None]
  - Swelling [None]
  - Oxygen saturation decreased [None]
  - Transfusion [None]
